FAERS Safety Report 6772878-8 (Version None)
Quarter: 2010Q2

REPORT INFORMATION
  Report Type: 
  Country: None (occurrence: None)
  Receive Date: 20100616
  Receipt Date: 20100608
  Transmission Date: 20101027
  Serious: Yes (Disabling)
  Sender: FDA-Public Use
  Company Number: GB-ELI_LILLY_AND_COMPANY-GB201006002315

PATIENT
  Age: 69 Year
  Sex: Male
  Weight: 79 kg

DRUGS (10)
  1. BYETTA [Suspect]
     Dosage: 5 UG, UNK
     Route: 058
     Dates: start: 20100219, end: 20100319
  2. BYETTA [Suspect]
     Dosage: 10 UG, UNK
     Route: 058
     Dates: start: 20100319, end: 20100514
  3. ASPIRIN [Concomitant]
     Dosage: 75 MG, UNK
     Route: 048
     Dates: start: 20010101
  4. ATENOLOL [Concomitant]
     Indication: ANGINA PECTORIS
     Dosage: 50 MG, UNK
     Route: 048
     Dates: start: 20050101
  5. GLYCERYL TRINITRATE [Concomitant]
     Indication: ANGINA PECTORIS
     Route: 058
     Dates: start: 20050101
  6. METFORMIN HCL [Concomitant]
     Indication: DIABETES MELLITUS
     Dosage: 2 G, UNK
     Route: 048
     Dates: start: 19990101
  7. PIOGLITAZONE [Concomitant]
     Dosage: 45 MG, UNK
     Dates: end: 20100101
  8. RAMIPRIL [Concomitant]
     Dosage: 5 UG, UNK
     Dates: start: 20050101
  9. SIMVASTATIN [Concomitant]
     Dosage: 40 MG, UNK
     Dates: start: 20060101
  10. TOLBUTAMIDE [Concomitant]
     Dosage: 500 MG, UNK
     Dates: end: 20100316

REACTIONS (2)
  - HERPES ZOSTER [None]
  - UVEITIS [None]
